FAERS Safety Report 8403221-6 (Version None)
Quarter: 2012Q2

REPORT INFORMATION
  Report Type: 
  Country: None (occurrence: None)
  Receive Date: 20120601
  Receipt Date: 20120525
  Transmission Date: 20120825
  Serious: Yes (Other)
  Sender: FDA-Public Use
  Company Number: US-MERCK-1203USA01480

PATIENT
  Age: 52 Year
  Sex: Female

DRUGS (1)
  1. FOSAMAX [Suspect]
     Indication: OSTEOPOROSIS
     Route: 048
     Dates: start: 20030101, end: 20080501

REACTIONS (8)
  - PAIN [None]
  - ANXIETY [None]
  - HORMONE LEVEL ABNORMAL [None]
  - STRESS [None]
  - ABDOMINAL PAIN UPPER [None]
  - FEMUR FRACTURE [None]
  - LOW TURNOVER OSTEOPATHY [None]
  - ARTHROPATHY [None]
